FAERS Safety Report 20834535 (Version 2)
Quarter: 2022Q2

REPORT INFORMATION
  Report Type: Spontaneous
  Country: CN (occurrence: CN)
  Receive Date: 20220516
  Receipt Date: 20220517
  Transmission Date: 20220721
  Serious: Yes (Other)
  Sender: FDA-Public Use
  Company Number: CN-009507513-2205CHN003873

PATIENT
  Age: 53 Year
  Sex: Female
  Weight: 70 kg

DRUGS (1)
  1. JANUVIA [Suspect]
     Active Substance: SITAGLIPTIN PHOSPHATE
     Indication: Type 2 diabetes mellitus
     Dosage: 100 MILLIGRAM (MG), ONCE A DAY (QD)
     Route: 048
     Dates: start: 20220426, end: 20220428

REACTIONS (6)
  - Diabetes mellitus inadequate control [Unknown]
  - Dizziness [Recovered/Resolved]
  - Dry eye [Recovered/Resolved]
  - Abdominal distension [Recovered/Resolved]
  - Eye pain [Unknown]
  - Eye disorder [Unknown]

NARRATIVE: CASE EVENT DATE: 20220426
